FAERS Safety Report 19172764 (Version 4)
Quarter: 2021Q4

REPORT INFORMATION
  Report Type: Report from Study
  Country: AT (occurrence: AT)
  Receive Date: 20210423
  Receipt Date: 20211015
  Transmission Date: 20220304
  Serious: Yes (Hospitalization)
  Sender: FDA-Public Use
  Company Number: AT-CELLTRION INC.-2021AT005478

PATIENT

DRUGS (15)
  1. TRASTUZUMAB [Suspect]
     Active Substance: TRASTUZUMAB
     Indication: HER2 positive breast cancer
     Dosage: 648 MG, EVERY 3 WEEKS
     Route: 042
     Dates: start: 20171011
  2. CAPECITABINE [Suspect]
     Active Substance: CAPECITABINE
     Indication: HER2 positive breast cancer
     Dosage: 4300 MG, EVERY 0.5 DAY
     Route: 048
     Dates: start: 20180625
  3. CAPECITABINE [Suspect]
     Active Substance: CAPECITABINE
     Dosage: 3600 MG, EVERY 0.5 DAY (MOST RECENT DOSE ON 08/FEB/2019)
     Route: 048
     Dates: start: 20181001
  4. DOCETAXEL [Suspect]
     Active Substance: DOCETAXEL
     Indication: HER2 positive breast cancer
     Dosage: 139.47 MG, EVERY 3 WEEKS
     Route: 042
     Dates: start: 20171011, end: 20171123
  5. DOCETAXEL [Suspect]
     Active Substance: DOCETAXEL
     Dosage: 100.94 MG, EVERY 3 WEEKS
     Route: 042
     Dates: start: 20171214
  6. DOCETAXEL [Suspect]
     Active Substance: DOCETAXEL
     Dosage: 67.1 MG, EVERY 3 WEEKS
     Route: 042
     Dates: start: 20180201
  7. CARBOPLATIN [Suspect]
     Active Substance: CARBOPLATIN
     Indication: HER2 positive breast cancer
     Dosage: 659.43 MG, EVERY 3 WEEKS
     Route: 042
     Dates: start: 20171011
  8. CARBOPLATIN [Suspect]
     Active Substance: CARBOPLATIN
     Dosage: 493.13 MG, EVERY 3 WEEKS
     Route: 042
     Dates: start: 20171214, end: 20180111
  9. CARBOPLATIN [Suspect]
     Active Substance: CARBOPLATIN
     Dosage: 329.72 MG, EVERY 3 WEEKS
     Route: 042
     Dates: start: 20180201
  10. PERTUZUMAB [Suspect]
     Active Substance: PERTUZUMAB
     Indication: HER2 positive breast cancer
     Dosage: 840 MG, EVERY 3 WEEKS
     Route: 042
     Dates: start: 20171011, end: 20180201
  11. ZOLPIDEM [Concomitant]
     Active Substance: ZOLPIDEM TARTRATE
     Dosage: UNK
     Dates: start: 20180403, end: 20190217
  12. BETOPTIC [Concomitant]
     Active Substance: BETAXOLOL HYDROCHLORIDE
     Dosage: ONGOING = CHECKED
     Dates: start: 20190217
  13. LANSOBENE [Concomitant]
     Dosage: ONGOING = CHECKED
     Dates: start: 20190217
  14. TRAZODONE HYDROCHLORIDE [Concomitant]
     Active Substance: TRAZODONE HYDROCHLORIDE
     Dosage: ONGOING = CHECKED
     Dates: end: 20180403
  15. CLINDAMYCIN [Concomitant]
     Active Substance: CLINDAMYCIN
     Dosage: ONGOING = CHECKED
     Dates: start: 20171011, end: 20190217

REACTIONS (2)
  - Neutropenia [Recovered/Resolved]
  - Overdose [Unknown]

NARRATIVE: CASE EVENT DATE: 20171130
